FAERS Safety Report 9281735 (Version 2)
Quarter: 2013Q4

REPORT INFORMATION
  Report Type: Spontaneous
  Country: US (occurrence: US)
  Receive Date: 20130510
  Receipt Date: 20131011
  Transmission Date: 20140711
  Serious: Yes (Hospitalization)
  Sender: FDA-Public Use
  Company Number: US-B.I. PHARMACEUTICALS,INC./RIDGEFIELD-2013-BI-12872BP

PATIENT
  Age: 81 Year
  Sex: Female
  Weight: 52.16 kg

DRUGS (13)
  1. PRADAXA [Suspect]
     Indication: ANTICOAGULANT THERAPY
     Dosage: 300 MG
     Route: 048
     Dates: start: 20111205, end: 20120306
  2. NAPROSYN [Concomitant]
     Indication: ARTHRITIS
  3. SYNTHROID [Concomitant]
     Dosage: 0.05 MG
  4. VASOTEC [Concomitant]
     Dosage: 5 MG
  5. ENALAPRIL [Concomitant]
  6. VICODIN ES [Concomitant]
     Indication: PAIN
  7. CLONIDINE [Concomitant]
     Dosage: 0.1 MG
  8. KETOCONAZOLE [Concomitant]
  9. FLOVENT [Concomitant]
     Dosage: 176 MCG
  10. PRAVACHOL [Concomitant]
     Dosage: 40 MG
  11. MAXZIDE [Concomitant]
  12. METOPROLOL [Concomitant]
     Dosage: 50 MG
  13. FLEXERIL [Concomitant]
     Dosage: 15 MG

REACTIONS (4)
  - Splenic haemorrhage [Unknown]
  - Gastric perforation [Unknown]
  - Sepsis [Unknown]
  - Anaemia [Unknown]
